FAERS Safety Report 23245810 (Version 3)
Quarter: 2024Q1

REPORT INFORMATION
  Report Type: Spontaneous
  Country: NL (occurrence: NL)
  Receive Date: 20231130
  Receipt Date: 20240130
  Transmission Date: 20240409
  Serious: Yes (Hospitalization, Other)
  Sender: FDA-Public Use
  Company Number: NL-ASTELLAS-2023US035563

PATIENT
  Age: 17 Year
  Sex: Male

DRUGS (19)
  1. XOSPATA [Suspect]
     Active Substance: GILTERITINIB
     Indication: FLT3 gene mutation
     Route: 048
     Dates: start: 20231107, end: 20231121
  2. XOSPATA [Suspect]
     Active Substance: GILTERITINIB
     Indication: Acute myeloid leukaemia refractory
  3. MICAFUNGIN [Concomitant]
     Active Substance: MICAFUNGIN SODIUM
     Indication: Antifungal prophylaxis
     Route: 042
     Dates: start: 20231103
  4. CLEMASTINE [Concomitant]
     Active Substance: CLEMASTINE
     Indication: Transfusion reaction
     Dosage: 2 MG, AS NEEDED, (IT WAS REPORTED THAT THIS DRUG WAS USED AS NECESSARY)
     Route: 042
     Dates: start: 20231020
  5. AMOXICILLIN\CLAVULANIC ACID [Concomitant]
     Active Substance: AMOXICILLIN\CLAVULANIC ACID
     Indication: Tooth extraction
     Dosage: 500/215 MG, THRICE DAILY, ( 3 TIMES PER DAY)
     Route: 048
     Dates: start: 20231102, end: 20231103
  6. ACETAMINOPHEN [Concomitant]
     Active Substance: ACETAMINOPHEN
     Indication: Pain
     Route: 048
     Dates: start: 20231101, end: 20231109
  7. SULFAMETHOXAZOLE\TRIMETHOPRIM [Concomitant]
     Active Substance: SULFAMETHOXAZOLE\TRIMETHOPRIM
     Indication: Antifungal prophylaxis
     Dosage: 960 MG, THRICE WEEKLY, (3 DAYS A WEEK, TAKEN ON FRIDAY/SATURDAY/SUNDAY)
     Route: 048
     Dates: start: 20231103
  8. CIPROFLOXACIN [Concomitant]
     Active Substance: CIPROFLOXACIN
     Indication: Prophylaxis
     Route: 048
     Dates: start: 20231103
  9. VALACYCLOVIR HYDROCHLORIDE [Concomitant]
     Active Substance: VALACYCLOVIR HYDROCHLORIDE
     Indication: Prophylaxis
     Route: 048
     Dates: start: 20231106
  10. CYTARABINE [Concomitant]
     Active Substance: CYTARABINE
     Indication: Chemotherapy
     Dosage: 30 MG, TOTAL DOSE, (SINGLE DOSE)
     Route: 037
     Dates: start: 20231023, end: 20231023
  11. CYTARABINE [Concomitant]
     Active Substance: CYTARABINE
     Indication: Prophylaxis
  12. FLUDARABINE [Concomitant]
     Active Substance: FLUDARABINE PHOSPHATE
     Indication: Chemotherapy
     Dosage: 47.5 MG, ONCE DAILY, (FLA CHEMOTHERAPY (5 DOSAGES)
     Route: 042
     Dates: start: 20231102, end: 20231106
  13. CYTARABINE [Concomitant]
     Active Substance: CYTARABINE
     Indication: Chemotherapy
     Dosage: 3200 MG, ONCE DAILY, (FLA CHEMOTHERAPY (5 DOSAGES)
     Route: 042
     Dates: start: 20231102, end: 20231106
  14. GRANISETRON [Concomitant]
     Active Substance: GRANISETRON
     Indication: Antiemetic supportive care
     Route: 042
     Dates: start: 20231102, end: 20231107
  15. APREPITANT [Concomitant]
     Active Substance: APREPITANT
     Indication: Antiemetic supportive care
     Route: 048
     Dates: start: 20231102, end: 20231102
  16. APREPITANT [Concomitant]
     Active Substance: APREPITANT
     Route: 048
     Dates: start: 20231103, end: 20231104
  17. BISEPTOL [Concomitant]
     Active Substance: SULFAMETHOXAZOLE\TRIMETHOPRIM
     Indication: Prophylaxis
     Dosage: 480 MG, 2 TIMES PER DAY, 3 DAYS PER WEEK (MON/WED/FRI)
     Route: 048
     Dates: start: 20230612, end: 20231101
  18. NIFUROXAZIDE [Concomitant]
     Active Substance: NIFUROXAZIDE
     Indication: Prophylaxis
     Route: 048
     Dates: start: 20230612, end: 20231025
  19. FUNGIZONE [Concomitant]
     Active Substance: AMPHOTERICIN B
     Indication: Prophylaxis
     Route: 048
     Dates: start: 20231004, end: 20231025

REACTIONS (2)
  - Escherichia sepsis [Recovered/Resolved]
  - Off label use [Recovered/Resolved]

NARRATIVE: CASE EVENT DATE: 20231107
